FAERS Safety Report 12338468 (Version 7)
Quarter: 2017Q3

REPORT INFORMATION
  Report Type: Report from Study
  Country: US (occurrence: US)
  Receive Date: 20160505
  Receipt Date: 20170712
  Transmission Date: 20171127
  Serious: Yes (Hospitalization, Other)
  Sender: FDA-Public Use
  Company Number: US-BAYER-2016-068623

PATIENT
  Age: 49 Year
  Sex: Female

DRUGS (21)
  1. STIVARGA [Suspect]
     Active Substance: REGORAFENIB
     Indication: COLON CANCER
     Dosage: 160 MG, QD (TABS)
     Route: 048
     Dates: start: 20160125
  2. VITAMIN B COMPLEX [B3,B6,B2,B1 HCL] [Concomitant]
     Route: 048
  3. OXYCODONE [Concomitant]
     Active Substance: OXYCODONE
     Dosage: 15 MG
  4. VITAMIN C [Concomitant]
     Active Substance: ASCORBIC ACID
     Dosage: 500 MG
  5. GABAPENTIN. [Concomitant]
     Active Substance: GABAPENTIN
     Dosage: 400 MG
  6. PANTOPRAZOLE [Concomitant]
     Active Substance: PANTOPRAZOLE
     Dosage: 40 MG
  7. STIVARGA [Suspect]
     Active Substance: REGORAFENIB
     Indication: ANAEMIA OF CHRONIC DISEASE
     Dosage: 160 MG, QD (TABS)
     Route: 048
     Dates: start: 20160421
  8. ZYRTEC [Concomitant]
     Active Substance: CETIRIZINE HYDROCHLORIDE
     Dosage: 10 MG
  9. BIOTIN [Concomitant]
     Active Substance: BIOTIN
     Dosage: 5 MG
  10. ZOFRAN [Concomitant]
     Active Substance: ONDANSETRON HYDROCHLORIDE
     Dosage: 8 MG
  11. FOLFOX [Concomitant]
     Active Substance: FLUOROURACIL\LEUCOVORIN CALCIUM\OXALIPLATIN
     Indication: COLON CANCER
     Dosage: UNK
     Dates: end: 201602
  12. STIVARGA [Suspect]
     Active Substance: REGORAFENIB
     Indication: COLON CANCER
     Dosage: 160 MG, QD FOR 21 DAYS AND 7 DAYS OFF
     Route: 048
     Dates: start: 2016, end: 2016
  13. ATENOLOL. [Concomitant]
     Active Substance: ATENOLOL
     Dosage: 25 MG
  14. BENEFIBER [Concomitant]
     Active Substance: STARCH, WHEAT
     Route: 048
  15. EMLA [Concomitant]
     Active Substance: LIDOCAINE\PRILOCAINE
     Route: 061
  16. LORAZEPAM. [Concomitant]
     Active Substance: LORAZEPAM
     Dosage: 0.5 MG
  17. VITAMIN D3 [Concomitant]
     Active Substance: CHOLECALCIFEROL
     Dosage: 1000 UNITS
  18. STIVARGA [Suspect]
     Active Substance: REGORAFENIB
     Indication: COLON CANCER
     Dosage: 120 MG, QD
     Route: 048
     Dates: start: 2016
  19. STIVARGA [Suspect]
     Active Substance: REGORAFENIB
     Indication: COLON CANCER
     Dosage: 160 MG DAILY
     Route: 048
  20. CELEXA [Concomitant]
     Active Substance: CITALOPRAM HYDROBROMIDE
     Dosage: 10 MG
  21. AVASTIN [Concomitant]
     Active Substance: BEVACIZUMAB
     Indication: COLON CANCER
     Dosage: UNK
     Dates: start: 201602

REACTIONS (20)
  - Hospitalisation [None]
  - Swelling face [None]
  - Skin exfoliation [None]
  - Colitis [None]
  - Abdominal wall wound [Not Recovered/Not Resolved]
  - Scab [None]
  - Fatigue [None]
  - Metastases to abdominal wall [None]
  - Tumour haemorrhage [None]
  - Tumour necrosis [Not Recovered/Not Resolved]
  - Colonic fistula [None]
  - Gastrointestinal toxicity [None]
  - Constipation [None]
  - Decreased appetite [None]
  - Drug dose omission [None]
  - Scar [None]
  - Thrombocytopenia [None]
  - Adverse drug reaction [None]
  - Drug dose omission [None]
  - Dehydration [None]

NARRATIVE: CASE EVENT DATE: 2016
